FAERS Safety Report 7415438-8 (Version None)
Quarter: 2011Q2

REPORT INFORMATION
  Report Type: 
  Country: None (occurrence: None)
  Receive Date: 20110414
  Receipt Date: 20110413
  Transmission Date: 20111010
  Serious: Yes (Death)
  Sender: FDA-Public Use
  Company Number: DE-SANOFI-AVENTIS-2011SA022366

PATIENT

DRUGS (2)
  1. CETUXIMAB [Suspect]
     Indication: HEAD AND NECK CANCER
     Route: 041
  2. DOCETAXEL [Suspect]
     Indication: HEAD AND NECK CANCER
     Route: 041

REACTIONS (1)
  - GENERAL PHYSICAL HEALTH DETERIORATION [None]
